FAERS Safety Report 7908180-8 (Version None)
Quarter: 2011Q4

REPORT INFORMATION
  Report Type: 
  Country: None (occurrence: None)
  Receive Date: 20111111
  Receipt Date: 20111102
  Transmission Date: 20120403
  Serious: No
  Sender: FDA-Public Use
  Company Number: US-BIOGENIDEC-2011BI042098

PATIENT
  Sex: Male

DRUGS (1)
  1. TYSABRI [Suspect]
     Indication: MULTIPLE SCLEROSIS
     Route: 042
     Dates: start: 20110819, end: 20110916

REACTIONS (5)
  - ADVERSE DRUG REACTION [None]
  - THROAT TIGHTNESS [None]
  - CHEST PAIN [None]
  - CHILLS [None]
  - RASH [None]
